FAERS Safety Report 10429242 (Version 2)
Quarter: 2014Q4

REPORT INFORMATION
  Report Type: Spontaneous
  Country: DE (occurrence: DE)
  Receive Date: 20140904
  Receipt Date: 20141024
  Transmission Date: 20150528
  Serious: Yes (Death, Hospitalization)
  Sender: FDA-Public Use
  Company Number: DE-BRISTOL-MYERS SQUIBB COMPANY-21340658

PATIENT
  Age: 66 Year
  Sex: Male

DRUGS (8)
  1. SPIRIVA [Concomitant]
     Active Substance: TIOTROPIUM BROMIDE MONOHYDRATE
  2. SIMVASTATIN. [Concomitant]
     Active Substance: SIMVASTATIN
  3. VIANI [Concomitant]
     Active Substance: FLUTICASONE PROPIONATE\SALMETEROL XINAFOATE
  4. ERBITUX [Suspect]
     Active Substance: CETUXIMAB
     Indication: LIP AND/OR ORAL CAVITY CANCER
     Route: 042
     Dates: start: 20140725
  5. CANDESARTAN [Concomitant]
     Active Substance: CANDESARTAN
  6. CARVEDILOL. [Concomitant]
     Active Substance: CARVEDILOL
  7. NOVAMINSULFON [Concomitant]
     Active Substance: METAMIZOLE
  8. ASPIRIN. [Concomitant]
     Active Substance: ASPIRIN

REACTIONS (1)
  - Anaphylactic shock [Fatal]

NARRATIVE: CASE EVENT DATE: 20140725
